FAERS Safety Report 6550841-X (Version None)
Quarter: 2010Q1

REPORT INFORMATION
  Report Type: 
  Country: None (occurrence: None)
  Receive Date: 20100122
  Receipt Date: 20100122
  Transmission Date: 20100710
  Serious: Yes (Hospitalization)
  Sender: FDA-Public Use
  Company Number: None

PATIENT
  Sex: Female
  Weight: 99.54 kg

DRUGS (2)
  1. CISPLATIN [Suspect]
     Dosage: 60 MG
  2. ERBITUX [Suspect]
     Dosage: 60 MG

REACTIONS (4)
  - ABDOMINAL ABSCESS [None]
  - HAEMOGLOBIN DECREASED [None]
  - LYMPH GLAND INFECTION [None]
  - POSTOPERATIVE WOUND INFECTION [None]
